FAERS Safety Report 8521500-9 (Version None)
Quarter: 2012Q3

REPORT INFORMATION
  Report Type: 
  Country: None (occurrence: None)
  Receive Date: 20120719
  Receipt Date: 20120710
  Transmission Date: 20120928
  Serious: Yes (Other)
  Sender: FDA-Public Use
  Company Number: US-ASTRAZENECA-2012SE24518

PATIENT
  Age: 74 Year
  Sex: Female

DRUGS (1)
  1. ARIMIDEX [Suspect]
     Indication: BREAST CANCER STAGE IV
     Route: 048

REACTIONS (8)
  - RENAL CYST [None]
  - DIVERTICULUM INTESTINAL [None]
  - PULMONARY GRANULOMA [None]
  - NEOPLASM MALIGNANT [None]
  - HEPATIC STEATOSIS [None]
  - RECURRENT CANCER [None]
  - CHOLELITHIASIS [None]
  - PLEURAL DISORDER [None]
